FAERS Safety Report 18479686 (Version 1)
Quarter: 2020Q4

REPORT INFORMATION
  Report Type: Spontaneous
  Country: US (occurrence: US)
  Receive Date: 20201109
  Receipt Date: 20201109
  Transmission Date: 20210114
  Serious: No
  Sender: FDA-Public Use
  Company Number: US-MYLANLABS-2020M1091571

PATIENT
  Sex: Female

DRUGS (12)
  1. FENTANYL TRANSDERMAL SYSTEM [Suspect]
     Active Substance: FENTANYL
     Indication: PAIN MANAGEMENT
     Dosage: UNK UNK, Q3D
     Route: 062
  2. FENTANYL TRANSDERMAL SYSTEM [Suspect]
     Active Substance: FENTANYL
     Indication: OSTEOPOROSIS
  3. FENTANYL. [Suspect]
     Active Substance: FENTANYL
     Indication: MULTIPLE FRACTURES
  4. FENTANYL. [Suspect]
     Active Substance: FENTANYL
     Indication: PAIN MANAGEMENT
     Dosage: UNK
     Route: 062
  5. FENTANYL TRANSDERMAL SYSTEM [Suspect]
     Active Substance: FENTANYL
     Indication: MULTIPLE FRACTURES
  6. FENTANYL. [Suspect]
     Active Substance: FENTANYL
     Indication: PAIN MANAGEMENT
     Dosage: UNK UNK, Q3D
     Route: 062
  7. FENTANYL. [Suspect]
     Active Substance: FENTANYL
     Indication: OSTEOPOROSIS
  8. FENTANYL. [Suspect]
     Active Substance: FENTANYL
     Indication: MULTIPLE FRACTURES
  9. DILAUDID [Concomitant]
     Active Substance: HYDROMORPHONE HYDROCHLORIDE
     Indication: MULTIPLE FRACTURES
  10. FENTANYL. [Suspect]
     Active Substance: FENTANYL
     Indication: OSTEOPOROSIS
  11. DILAUDID [Concomitant]
     Active Substance: HYDROMORPHONE HYDROCHLORIDE
     Indication: OSTEOPOROSIS
     Dosage: 4 MILLIGRAM, TID
  12. XANAX [Concomitant]
     Active Substance: ALPRAZOLAM
     Dosage: 0.25 MILLIGRAM, HS (AT NIGHT TIME)

REACTIONS (3)
  - Night sweats [Unknown]
  - Hot flush [Unknown]
  - Drug ineffective [Unknown]
